FAERS Safety Report 9228121 (Version 1)
Quarter: 2013Q2

REPORT INFORMATION
  Report Type: Spontaneous
  Country: GB (occurrence: GB)
  Receive Date: 20130412
  Receipt Date: 20130412
  Transmission Date: 20140414
  Serious: Yes (Hospitalization, Other)
  Sender: FDA-Public Use
  Company Number: GB-TEVA-397386ISR

PATIENT
  Age: 71 Year
  Sex: Female
  Weight: 58.4 kg

DRUGS (3)
  1. CARBOPLATIN [Suspect]
     Route: 042
     Dates: start: 20130327
  2. HYDROCORTISONE [Concomitant]
  3. PIRITON [Concomitant]

REACTIONS (3)
  - Nausea [Recovered/Resolved with Sequelae]
  - Dizziness [Recovered/Resolved with Sequelae]
  - Blood pressure decreased [Recovered/Resolved with Sequelae]
